FAERS Safety Report 5088289-X (Version None)
Quarter: 2006Q3

REPORT INFORMATION
  Report Type: 
  Country: None (occurrence: None)
  Receive Date: 20060727
  Receipt Date: 20060614
  Transmission Date: 20061208
  Serious: Yes (Other)
  Sender: FDA-Public Use
  Company Number: 2006076815

PATIENT
  Age: 71 Year
  Sex: Male
  Weight: 94.3482 kg

DRUGS (13)
  1. LYRICA [Suspect]
     Indication: NEURALGIA
     Dosage: 100 MG (100 MG, 1 IN 1 D) UNKNOWN
     Route: 065
     Dates: start: 20060613, end: 20060614
  2. ALLOPURINOL [Concomitant]
  3. ACETAMINOPHEN [Concomitant]
  4. ISOSORBIDE (ISOSORBIDE) [Concomitant]
  5. ACTOS [Concomitant]
  6. LASIX [Concomitant]
  7. POTASSIUM (POTASSIUM) [Concomitant]
  8. IRON (IRON) [Concomitant]
  9. LOTREL [Concomitant]
  10. ATENOLOL [Concomitant]
  11. CARDIZEM [Concomitant]
  12. CELEBREX [Concomitant]
  13. CALCIUM (CALCIUM) [Concomitant]

REACTIONS (3)
  - ABNORMAL SLEEP-RELATED EVENT [None]
  - ANXIETY [None]
  - LOSS OF CONSCIOUSNESS [None]
